FAERS Safety Report 10048046 (Version 6)
Quarter: 2015Q4

REPORT INFORMATION
  Report Type: Report from Study
  Country: JP (occurrence: JP)
  Receive Date: 20140331
  Receipt Date: 20151104
  Transmission Date: 20160304
  Serious: Yes (Hospitalization)
  Sender: FDA-Public Use
  Company Number: JP-PFIZER INC-2014074121

PATIENT
  Age: 76 Year
  Sex: Male
  Weight: 67.5 kg

DRUGS (19)
  1. AMLODIPINE [Concomitant]
     Active Substance: AMLODIPINE BESYLATE
     Indication: HYPERTENSION
     Dosage: 5 MG, DAILY
     Route: 048
     Dates: start: 20120516
  2. TANATRIL [Concomitant]
     Active Substance: IMIDAPRIL
     Indication: HYPERTENSION
     Dosage: 5 MG, DAILY
     Route: 048
     Dates: start: 20120502
  3. TULOBUTEROL HYDROCHLORIDE [Concomitant]
     Active Substance: TULOBUTEROL HYDROCHLORIDE
     Indication: ASTHMA
     Dosage: 2 MG, 1X/DAY
     Route: 062
     Dates: start: 20120502
  4. MULCHINA [Concomitant]
     Indication: KERATOPATHY
     Dosage: 2X/DAY IN THE RIGHT EYE
     Route: 047
  5. ANCARON [Concomitant]
     Active Substance: AMIODARONE HYDROCHLORIDE
     Indication: ARRHYTHMIA
     Dosage: 150 MG, DAILY
     Route: 048
     Dates: start: 20121018
  6. WARFARIN [Concomitant]
     Active Substance: WARFARIN
     Indication: THROMBOSIS PROPHYLAXIS
     Dosage: 1 MG, DAILY
     Route: 048
     Dates: start: 20120522
  7. LUPRAC [Concomitant]
     Active Substance: TORSEMIDE
     Indication: CARDIAC FAILURE
     Dosage: 8 MG, DAILY
     Route: 048
     Dates: start: 20120507
  8. MEXITIL [Concomitant]
     Active Substance: MEXILETINE HYDROCHLORIDE
     Indication: ARRHYTHMIA
     Dosage: 150 MG, DAILY
     Route: 048
     Dates: start: 20120502
  9. MUCOSTA [Concomitant]
     Active Substance: REBAMIPIDE
     Indication: PROPHYLAXIS AGAINST GASTROINTESTINAL ULCER
     Dosage: 300 MG, DAILY
     Route: 048
     Dates: start: 20120502
  10. ISODINE [Concomitant]
     Active Substance: POVIDONE-IODINE
     Indication: PROPHYLAXIS
     Dosage: UNK
  11. THEO-DUR [Concomitant]
     Active Substance: THEOPHYLLINE ANHYDROUS
     Indication: ASTHMA
     Dosage: 200 MG, DAILY
     Route: 048
  12. KARY UNI [Concomitant]
     Active Substance: PIRENOXINE
     Indication: CATARACT
     Dosage: 2X/DAY IN THE LEFT EYE
     Route: 047
  13. EPLERENONE. [Suspect]
     Active Substance: EPLERENONE
     Indication: CARDIAC FAILURE CHRONIC
     Dosage: 25 MG, ALTERNATE DAY
     Route: 048
     Dates: start: 20120807, end: 20120904
  14. EPLERENONE. [Suspect]
     Active Substance: EPLERENONE
     Dosage: 25 MG, 1X/DAY
     Route: 048
     Dates: start: 20120905, end: 20120920
  15. ONBREZ [Concomitant]
     Active Substance: INDACATEROL
     Indication: CHRONIC OBSTRUCTIVE PULMONARY DISEASE
     Dosage: ONCE DAILY
     Route: 055
  16. SPIRIVA [Concomitant]
     Active Substance: TIOTROPIUM BROMIDE MONOHYDRATE
     Indication: CHRONIC OBSTRUCTIVE PULMONARY DISEASE
     Dosage: ONCE DAILY
     Route: 055
  17. LASIX [Concomitant]
     Active Substance: FUROSEMIDE
     Indication: CARDIAC FAILURE
     Dosage: 60 MG, DAILY
     Route: 048
     Dates: start: 20120502
  18. FRANDOL [Concomitant]
     Active Substance: ISOSORBIDE DINITRATE
     Indication: PROPHYLAXIS
     Dosage: 40 MG, 1X/DAY
     Route: 062
     Dates: start: 20120502
  19. SOLANAX [Concomitant]
     Active Substance: ALPRAZOLAM
     Indication: INSOMNIA
     Dosage: 0.4 MG, DAILY
     Route: 048

REACTIONS (2)
  - Ventricular tachycardia [Recovered/Resolved]
  - Cardiac failure chronic [Recovered/Resolved]

NARRATIVE: CASE EVENT DATE: 20140226
